FAERS Safety Report 6615615-X (Version None)
Quarter: 2010Q1

REPORT INFORMATION
  Report Type: 
  Country: None (occurrence: None)
  Receive Date: 20100305
  Receipt Date: 20100222
  Transmission Date: 20100710
  Serious: Yes (Other)
  Sender: FDA-Public Use
  Company Number: US-BAYER-201014678NA

PATIENT
  Age: 31 Year
  Sex: Female

DRUGS (2)
  1. MIRENA [Suspect]
     Indication: CONTRACEPTION
     Dosage: FREQUENCY: CONTINUOUS
     Route: 015
     Dates: start: 20070101, end: 20100201
  2. TAMOXIFEN CITRATE [Concomitant]
     Indication: BREAST CANCER

REACTIONS (9)
  - ABDOMINAL PAIN [None]
  - AFFECT LABILITY [None]
  - BACK PAIN [None]
  - HEADACHE [None]
  - LYMPHADENOPATHY [None]
  - MIGRAINE [None]
  - MOOD SWINGS [None]
  - OEDEMA PERIPHERAL [None]
  - VAGINAL HAEMORRHAGE [None]
